FAERS Safety Report 7819103-4 (Version None)
Quarter: 2011Q4

REPORT INFORMATION
  Report Type: 
  Country: None (occurrence: None)
  Receive Date: 20111018
  Receipt Date: 20111010
  Transmission Date: 20120403
  Serious: Yes (Other)
  Sender: FDA-Public Use
  Company Number: US-US-EMD SERONO, INC.-7088825

PATIENT
  Sex: Female

DRUGS (4)
  1. TOPAMAX [Concomitant]
     Indication: EPILEPSY
  2. REBIF [Suspect]
     Indication: PRODUCT USED FOR UNKNOWN INDICATION
     Route: 058
     Dates: start: 20110720
  3. OXYCONTIN [Concomitant]
     Indication: PAIN
  4. KEPPRA [Concomitant]

REACTIONS (3)
  - CONTUSION [None]
  - INJECTION SITE HAEMATOMA [None]
  - KIDNEY INFECTION [None]
